FAERS Safety Report 21998820 (Version 1)
Quarter: 2023Q1

REPORT INFORMATION
  Report Type: Spontaneous
  Country: US (occurrence: None)
  Receive Date: 20230214
  Receipt Date: 20230214
  Transmission Date: 20230418
  Serious: Yes (Hospitalization, Disabling)
  Sender: FDA-Public Use
  Company Number: None

PATIENT
  Age: 90 Year
  Sex: Male

DRUGS (1)
  1. SUNITINIB [Suspect]
     Active Substance: SUNITINIB
     Dosage: 25MG DAILY ORAL
     Route: 048
     Dates: start: 20220217, end: 20221211

REACTIONS (3)
  - Pericardial effusion [None]
  - Therapy interrupted [None]
  - Condition aggravated [None]

NARRATIVE: CASE EVENT DATE: 20221211
